FAERS Safety Report 8482257-3 (Version None)
Quarter: 2012Q3

REPORT INFORMATION
  Report Type: 
  Country: None (occurrence: None)
  Receive Date: 20120702
  Receipt Date: 20120606
  Transmission Date: 20120928
  Serious: No
  Sender: FDA-Public Use
  Company Number: US-BAYER-2012-057585

PATIENT

DRUGS (5)
  1. IBUPROFEN [Concomitant]
  2. ASPIRIN [Suspect]
     Indication: DYSMENORRHOEA
     Dosage: UNK
     Route: 048
  3. ALEVE (CAPLET) [Suspect]
     Dosage: UNK
     Route: 048
  4. ACETAMINOPHEN [Concomitant]
  5. ALEVE (CAPLET) [Suspect]
     Indication: DYSMENORRHOEA
     Dosage: UNK
     Route: 048

REACTIONS (1)
  - DYSMENORRHOEA [None]
